FAERS Safety Report 7418077-8 (Version None)
Quarter: 2011Q2

REPORT INFORMATION
  Report Type: 
  Country: None (occurrence: None)
  Receive Date: 20110412
  Receipt Date: 20110412
  Transmission Date: 20111010
  Serious: Yes (Life-Threatening, Other)
  Sender: FDA-Public Use
  Company Number: None

PATIENT
  Age: 59 Year
  Sex: Female
  Weight: 107.7 kg

DRUGS (2)
  1. REVATIO [Suspect]
     Indication: PULMONARY ARTERIAL HYPERTENSION
     Dates: start: 20101114, end: 20101115
  2. NIACIN [Suspect]

REACTIONS (8)
  - DIZZINESS [None]
  - NAUSEA [None]
  - TONGUE OEDEMA [None]
  - OEDEMA PERIPHERAL [None]
  - MALAISE [None]
  - LIP OEDEMA [None]
  - EYELID OEDEMA [None]
  - FACE OEDEMA [None]
